FAERS Safety Report 9107547 (Version 1)
Quarter: 2013Q1

REPORT INFORMATION
  Report Type: Spontaneous
  Country: US (occurrence: US)
  Receive Date: 20130221
  Receipt Date: 20130221
  Transmission Date: 20140127
  Serious: No
  Sender: FDA-Public Use
  Company Number: US-TEVA-386642USA

PATIENT
  Sex: 0

DRUGS (1)
  1. TREANDA [Suspect]
     Dosage: 100MGS/20ML

REACTIONS (1)
  - Infusion site erythema [Unknown]
